FAERS Safety Report 8554008-5 (Version None)
Quarter: 2012Q3

REPORT INFORMATION
  Report Type: 
  Country: None (occurrence: None)
  Receive Date: 20120731
  Receipt Date: 20120727
  Transmission Date: 20120928
  Serious: Yes (Hospitalization)
  Sender: FDA-Public Use
  Company Number: FR-ABBOTT-12P-056-0961675-00

PATIENT
  Age: 59 Year
  Sex: Male

DRUGS (8)
  1. DEPAKENE [Suspect]
     Indication: EPILEPSY
     Dosage: DAILY
     Route: 048
  2. DEPAKENE [Suspect]
     Route: 048
  3. DIPIPERON [Suspect]
     Indication: DEPRESSION
  4. GLUCOPHAGE [Concomitant]
     Indication: PRODUCT USED FOR UNKNOWN INDICATION
  5. DIAMICRON [Concomitant]
     Indication: PRODUCT USED FOR UNKNOWN INDICATION
  6. PERINDOPRIL ERBUMINE [Concomitant]
     Indication: PRODUCT USED FOR UNKNOWN INDICATION
  7. AMLODIPINE [Concomitant]
     Indication: PRODUCT USED FOR UNKNOWN INDICATION
  8. DIPIPERON [Suspect]
     Indication: ANXIETY
     Route: 048

REACTIONS (2)
  - CONVULSION [None]
  - HYPONATRAEMIA [None]
